FAERS Safety Report 6669723-8 (Version None)
Quarter: 2010Q2

REPORT INFORMATION
  Report Type: 
  Country: None (occurrence: None)
  Receive Date: 20100402
  Receipt Date: 20100317
  Transmission Date: 20101027
  Serious: Yes (Other)
  Sender: FDA-Public Use
  Company Number: THQ2010A00632

PATIENT
  Age: 72 Year
  Sex: Female

DRUGS (3)
  1. ZACTOS (PIOGLITAZONE HYDROCHLORIDE) [Suspect]
     Indication: BLOOD GLUCOSE
     Dosage: 15 MG (15 MG, 1 IN 1 D), PER ORAL
     Route: 048
     Dates: start: 20080101
  2. ZACTOS (PIOGLITAZONE HYDROCHLORIDE) [Suspect]
     Indication: DIABETES MELLITUS
     Dosage: 15 MG (15 MG, 1 IN 1 D), PER ORAL
     Route: 048
     Dates: start: 20080101
  3. FLUOXETINE [Concomitant]

REACTIONS (3)
  - HEPATIC CYST [None]
  - HEPATITIS C [None]
  - WHITE BLOOD CELL COUNT DECREASED [None]
